FAERS Safety Report 9217156 (Version 1)
Quarter: 2013Q2

REPORT INFORMATION
  Report Type: Spontaneous
  Country: DE (occurrence: DE)
  Receive Date: 20130408
  Receipt Date: 20130408
  Transmission Date: 20140414
  Serious: Yes (Other)
  Sender: FDA-Public Use
  Company Number: DE-ASTRAZENECA-2013SE14820

PATIENT
  Age: 27803 Day
  Sex: Female

DRUGS (11)
  1. FASLODEX [Suspect]
     Indication: BREAST CANCER METASTATIC
     Route: 030
     Dates: start: 201301
  2. ZOMETA [Concomitant]
     Indication: BREAST CANCER METASTATIC
  3. THURONAJOD [Concomitant]
  4. RIFUN [Concomitant]
  5. ENALAPRIL [Concomitant]
  6. ALLOPURINOL [Concomitant]
  7. METFORMIN [Concomitant]
  8. MARCUMAR [Concomitant]
  9. CONCOR [Concomitant]
  10. SORTIS [Concomitant]
  11. UNAT [Concomitant]

REACTIONS (3)
  - Gamma-glutamyltransferase increased [Unknown]
  - Aspartate aminotransferase increased [Unknown]
  - Alanine aminotransferase increased [Unknown]
